FAERS Safety Report 18453963 (Version 83)
Quarter: 2025Q4

REPORT INFORMATION
  Report Type: Report from Study
  Country: CA (occurrence: CA)
  Receive Date: 20201102
  Receipt Date: 20251218
  Transmission Date: 20260118
  Serious: Yes (Hospitalization, Other)
  Sender: TAKEDA
  Company Number: CA-TAKEDA-CA202019071

PATIENT
  Age: 21 Year
  Sex: Male
  Weight: 51 kg

DRUGS (59)
  1. IDURSULFASE [Suspect]
     Active Substance: IDURSULFASE
     Indication: Mucopolysaccharidosis II
     Dosage: 8 MILLIGRAM, 1/WEEK
     Dates: start: 20080403
  2. IDURSULFASE [Suspect]
     Active Substance: IDURSULFASE
     Dosage: 30 MILLIGRAM, 1/WEEK
     Dates: start: 200804
  3. IDURSULFASE [Suspect]
     Active Substance: IDURSULFASE
     Dosage: 24 MILLIGRAM, 1/WEEK
     Dates: start: 20200612
  4. IDURSULFASE [Suspect]
     Active Substance: IDURSULFASE
     Dosage: 24 MILLIGRAM, 1/WEEK
  5. IDURSULFASE [Suspect]
     Active Substance: IDURSULFASE
     Dosage: 24 MILLIGRAM, 1/WEEK
  6. IDURSULFASE [Suspect]
     Active Substance: IDURSULFASE
     Dosage: 5 DOSAGE FORM, 1/WEEK
  7. IDURSULFASE [Suspect]
     Active Substance: IDURSULFASE
     Dosage: 5 DOSAGE FORM, 2/WEEK
  8. IDURSULFASE [Suspect]
     Active Substance: IDURSULFASE
     Dosage: 5 DOSAGE FORM, 1/WEEK
  9. IDURSULFASE [Suspect]
     Active Substance: IDURSULFASE
     Dosage: 5 DOSAGE FORM, 1/WEEK
  10. IDURSULFASE [Suspect]
     Active Substance: IDURSULFASE
     Dosage: 5 DOSAGE FORM, 1/WEEK
  11. IDURSULFASE [Suspect]
     Active Substance: IDURSULFASE
     Dosage: 30 MILLIGRAM, QD
  12. IDURSULFASE [Suspect]
     Active Substance: IDURSULFASE
     Dosage: 5 DOSAGE FORM, 1/WEEK
  13. IDURSULFASE [Suspect]
     Active Substance: IDURSULFASE
     Dosage: 5 DOSAGE FORM, 1/WEEK
  14. IDURSULFASE [Suspect]
     Active Substance: IDURSULFASE
     Dosage: 5 DOSAGE FORM, 1/WEEK
  15. IDURSULFASE [Suspect]
     Active Substance: IDURSULFASE
     Dosage: 5 DOSAGE FORM, 1/WEEK
  16. IDURSULFASE [Suspect]
     Active Substance: IDURSULFASE
     Dosage: 30 MILLIGRAM, 1/WEEK
  17. IDURSULFASE [Suspect]
     Active Substance: IDURSULFASE
     Dosage: 5 DOSAGE FORM, 1/WEEK
  18. IDURSULFASE [Suspect]
     Active Substance: IDURSULFASE
     Dosage: 30 MILLIGRAM, 1/WEEK
  19. IDURSULFASE [Suspect]
     Active Substance: IDURSULFASE
     Dosage: 30 MILLIGRAM, 1/WEEK
  20. IDURSULFASE [Suspect]
     Active Substance: IDURSULFASE
     Dosage: 30 MILLIGRAM, 1/WEEK
  21. IDURSULFASE [Suspect]
     Active Substance: IDURSULFASE
     Dosage: 30 MILLIGRAM, 1/WEEK
  22. IDURSULFASE [Suspect]
     Active Substance: IDURSULFASE
     Dosage: 31 MILLIGRAM, 1/WEEK
  23. IDURSULFASE [Suspect]
     Active Substance: IDURSULFASE
     Dosage: UNK UNK, 1/WEEK
  24. IDURSULFASE [Suspect]
     Active Substance: IDURSULFASE
     Dosage: 31 MILLIGRAM, 1/WEEK
  25. IDURSULFASE [Suspect]
     Active Substance: IDURSULFASE
     Dosage: 8 MILLIGRAM, 1/WEEK
  26. IDURSULFASE [Suspect]
     Active Substance: IDURSULFASE
     Dosage: 24 MILLIGRAM, 1/WEEK
  27. IDURSULFASE [Suspect]
     Active Substance: IDURSULFASE
     Dosage: 24 MILLIGRAM, 1/WEEK
  28. IDURSULFASE [Suspect]
     Active Substance: IDURSULFASE
     Dosage: 30 MILLIGRAM, 1/WEEK
  29. IDURSULFASE [Suspect]
     Active Substance: IDURSULFASE
     Dosage: 5 DOSAGE FORM, 1/WEEK
  30. IDURSULFASE [Suspect]
     Active Substance: IDURSULFASE
     Dosage: UNK UNK, 1/WEEK
  31. IDURSULFASE [Suspect]
     Active Substance: IDURSULFASE
     Dosage: 5 DOSAGE FORM, 1/WEEK
  32. IDURSULFASE [Suspect]
     Active Substance: IDURSULFASE
     Dosage: UNK UNK, 1/WEEK
  33. IDURSULFASE [Suspect]
     Active Substance: IDURSULFASE
     Dosage: 31 MILLIGRAM, 1/WEEK
  34. IDURSULFASE [Suspect]
     Active Substance: IDURSULFASE
     Dosage: UNK UNK, 1/WEEK
  35. IDURSULFASE [Suspect]
     Active Substance: IDURSULFASE
     Dosage: 31 MILLIGRAM, 1/WEEK
  36. IDURSULFASE [Suspect]
     Active Substance: IDURSULFASE
     Dosage: 31 MILLIGRAM, 1/WEEK
  37. IDURSULFASE [Suspect]
     Active Substance: IDURSULFASE
     Dosage: 31 MILLIGRAM, 1/WEEK
  38. IDURSULFASE [Suspect]
     Active Substance: IDURSULFASE
     Dosage: 31 MILLIGRAM, 1/WEEK
  39. IDURSULFASE [Suspect]
     Active Substance: IDURSULFASE
     Dosage: 31 MILLIGRAM, 1/WEEK
  40. IDURSULFASE [Suspect]
     Active Substance: IDURSULFASE
     Dosage: 31 MILLIGRAM, 1/WEEK
  41. IDURSULFASE [Suspect]
     Active Substance: IDURSULFASE
     Dosage: 31 MILLIGRAM, 1/WEEK
     Dates: start: 20080403
  42. IDURSULFASE [Suspect]
     Active Substance: IDURSULFASE
     Dosage: 31 MILLIGRAM, 1/WEEK
  43. IDURSULFASE [Suspect]
     Active Substance: IDURSULFASE
     Dosage: 31 MILLIGRAM, 1/WEEK
  44. COVID-19 VACCINE NOS [Suspect]
     Active Substance: COVID-19 VACCINE
     Indication: Product used for unknown indication
     Dosage: UNK
  45. LEVETIRACETAM [Concomitant]
     Active Substance: LEVETIRACETAM
     Indication: Seizure
     Dosage: 1250 MILLIGRAM, BID
     Dates: start: 20210121
  46. LEVETIRACETAM [Concomitant]
     Active Substance: LEVETIRACETAM
     Indication: Epilepsy
     Dosage: 1500 MILLIGRAM, BID
  47. LEVETIRACETAM [Concomitant]
     Active Substance: LEVETIRACETAM
     Dosage: 1125 MILLIGRAM, BID
  48. LEVETIRACETAM [Concomitant]
     Active Substance: LEVETIRACETAM
     Dosage: 1000 MILLIGRAM, BID
  49. LEVETIRACETAM [Concomitant]
     Active Substance: LEVETIRACETAM
     Dosage: UNK UNK, BID
  50. LAMOTRIGINE [Concomitant]
     Active Substance: LAMOTRIGINE
     Indication: Product used for unknown indication
     Dosage: 75 MILLIGRAM, BID
  51. VITAMIN D [Concomitant]
     Active Substance: VITAMIN D NOS
     Indication: Product used for unknown indication
     Dosage: 25000 INTERNATIONAL UNIT, 1/WEEK
  52. MELATONIN [Concomitant]
     Active Substance: MELATONIN
     Indication: Product used for unknown indication
     Dosage: 5 MILLIGRAM, QD
  53. GABAPENTIN [Concomitant]
     Active Substance: GABAPENTIN
     Indication: Pain
     Dosage: 100 MILLIGRAM, QD
  54. GABAPENTIN [Concomitant]
     Active Substance: GABAPENTIN
     Dosage: 200 MILLIGRAM, QD
  55. LEVOTHYROXINE [Concomitant]
     Active Substance: LEVOTHYROXINE
     Indication: Product used for unknown indication
     Dosage: 0.1 MILLIGRAM, QD
  56. PREDNISONE [Concomitant]
     Active Substance: PREDNISONE
     Indication: Product used for unknown indication
     Dosage: 5 MILLIGRAM, BID
  57. PREDNISONE [Concomitant]
     Active Substance: PREDNISONE
     Dosage: 0.9 MILLIGRAM, BID
  58. KEPPRA [Concomitant]
     Active Substance: LEVETIRACETAM
     Indication: Seizure
     Dosage: 1000 MILLIGRAM, BID
  59. ENALAPRIL [Concomitant]
     Active Substance: ENALAPRIL
     Indication: Product used for unknown indication
     Dosage: 5 MILLIGRAM, BID
     Dates: end: 20220209

REACTIONS (69)
  - Epilepsy [Recovering/Resolving]
  - Ear infection [Recovered/Resolved]
  - Somnolence [Not Recovered/Not Resolved]
  - Epistaxis [Recovered/Resolved]
  - Syncope [Recovered/Resolved]
  - Seizure [Recovered/Resolved]
  - Fatigue [Recovered/Resolved]
  - Tremor [Recovered/Resolved]
  - Respiratory tract congestion [Recovering/Resolving]
  - Oxygen saturation decreased [Unknown]
  - Blood sodium decreased [Recovering/Resolving]
  - Blood iron decreased [Recovering/Resolving]
  - Body temperature decreased [Not Recovered/Not Resolved]
  - Poor quality sleep [Recovering/Resolving]
  - Temperature difference of extremities [Unknown]
  - Increased tendency to bruise [Unknown]
  - Muscle mass [Unknown]
  - Device power source issue [Recovering/Resolving]
  - Gait disturbance [Unknown]
  - Ocular hyperaemia [Unknown]
  - Bowel movement irregularity [Unknown]
  - Injection site bruising [Recovered/Resolved]
  - Poor venous access [Recovered/Resolved]
  - Decreased appetite [Not Recovered/Not Resolved]
  - Catheter site swelling [Recovering/Resolving]
  - Infusion site oedema [Recovering/Resolving]
  - Abnormal behaviour [Unknown]
  - Crying [Not Recovered/Not Resolved]
  - Weight increased [Unknown]
  - Vaccination site swelling [Not Recovered/Not Resolved]
  - Skin discolouration [Not Recovered/Not Resolved]
  - Peripheral swelling [Not Recovered/Not Resolved]
  - Excessive cerumen production [Unknown]
  - Asthenia [Recovered/Resolved]
  - Lip discolouration [Recovered/Resolved]
  - Cold sweat [Recovered/Resolved]
  - Hot flush [Recovered/Resolved]
  - Heart rate increased [Unknown]
  - Hepatic enzyme increased [Unknown]
  - Swelling of eyelid [Unknown]
  - Device issue [Unknown]
  - Hypokinesia [Unknown]
  - Fat tissue increased [Not Recovered/Not Resolved]
  - Mobility decreased [Not Recovered/Not Resolved]
  - Weight decreased [Unknown]
  - Medication error [Recovered/Resolved]
  - Incorrect product administration duration [Recovering/Resolving]
  - Inappropriate schedule of product administration [Recovered/Resolved]
  - Agitation [Recovered/Resolved]
  - Anxiety [Recovered/Resolved]
  - Cough [Recovering/Resolving]
  - Diarrhoea [Recovering/Resolving]
  - Erythema [Not Recovered/Not Resolved]
  - Hypotension [Not Recovered/Not Resolved]
  - Pyrexia [Unknown]
  - Product dose omission issue [Unknown]
  - Nasopharyngitis [Recovering/Resolving]
  - Rash erythematous [Recovered/Resolved]
  - Blister [Recovered/Resolved]
  - Multiple allergies [Recovered/Resolved]
  - Rhinorrhoea [Recovered/Resolved]
  - Rash pruritic [Recovered/Resolved]
  - Pain [Recovered/Resolved]
  - Fall [Recovering/Resolving]
  - Muscular weakness [Not Recovered/Not Resolved]
  - Exposure to extreme temperature [Recovered/Resolved]
  - Hypotonia [Recovering/Resolving]
  - Oedema peripheral [Not Recovered/Not Resolved]
  - Flushing [Recovered/Resolved]

NARRATIVE: CASE EVENT DATE: 20200101
